FAERS Safety Report 7397498-6 (Version None)
Quarter: 2011Q2

REPORT INFORMATION
  Report Type: 
  Country: None (occurrence: None)
  Receive Date: 20110406
  Receipt Date: 20110324
  Transmission Date: 20111010
  Serious: Yes (Hospitalization)
  Sender: FDA-Public Use
  Company Number: PHHY2011FR24426

PATIENT
  Sex: Female

DRUGS (5)
  1. OXYGEN THERAPY [Concomitant]
  2. FLUOROURACIL [Suspect]
     Dosage: UNK
     Route: 065
     Dates: start: 20080807, end: 20110221
  3. ELOXATIN [Concomitant]
     Dosage: UNK
     Route: 042
     Dates: start: 20080807, end: 20110221
  4. POLARAMINE [Concomitant]
  5. DEXAMETHASONE [Concomitant]

REACTIONS (6)
  - PYREXIA [None]
  - DYSPNOEA [None]
  - TACHYCARDIA [None]
  - C-REACTIVE PROTEIN INCREASED [None]
  - HYPERTENSION [None]
  - CHILLS [None]
